FAERS Safety Report 7048399-4 (Version None)
Quarter: 2010Q4

REPORT INFORMATION
  Report Type: 
  Country: None (occurrence: None)
  Receive Date: 20101014
  Receipt Date: 20101014
  Transmission Date: 20110411
  Serious: Yes (Hospitalization)
  Sender: FDA-Public Use
  Company Number: None

PATIENT
  Sex: Male
  Weight: 65.318 kg

DRUGS (1)
  1. VALPROIC ACID [Suspect]
     Indication: BIPOLAR DISORDER
     Dosage: 3500MG/DAY DIVIDED 3K/DAY PO
     Route: 048
     Dates: start: 19970101, end: 20101013

REACTIONS (3)
  - ACUTE RESPIRATORY FAILURE [None]
  - CONVULSION [None]
  - METABOLIC ENCEPHALOPATHY [None]
